FAERS Safety Report 25187283 (Version 1)
Quarter: 2025Q2

REPORT INFORMATION
  Report Type: Spontaneous
  Country: DE (occurrence: DE)
  Receive Date: 20250411
  Receipt Date: 20250411
  Transmission Date: 20250717
  Serious: Yes (Hospitalization)
  Sender: SUNOVION
  Company Number: DE-RICHTER-2025-GR-003645

PATIENT

DRUGS (1)
  1. ESTRADIOL\NORETHINDRONE ACETATE\RELUGOLIX [Suspect]
     Active Substance: ESTRADIOL\NORETHINDRONE ACETATE\RELUGOLIX
     Indication: Uterine leiomyoma
     Route: 048
     Dates: start: 202406, end: 202502

REACTIONS (3)
  - Menstrual disorder [Recovered/Resolved]
  - Uterine enlargement [Recovered/Resolved]
  - Vaginal haemorrhage [Recovered/Resolved]
